FAERS Safety Report 4993742-0 (Version None)
Quarter: 2006Q2

REPORT INFORMATION
  Report Type: 
  Country: None (occurrence: None)
  Receive Date: 20060503
  Receipt Date: 20060503
  Transmission Date: 20061013
  Serious: Yes (Disabling)
  Sender: FDA-Public Use
  Company Number: None

PATIENT
  Age: 79 Year
  Sex: Female
  Weight: 72.6 kg

DRUGS (1)
  1. MIACALCIN [Suspect]
     Indication: HIP FRACTURE
     Dosage: 200 MG ONE TIME SQ
     Route: 058
     Dates: start: 20060422, end: 20060422

REACTIONS (3)
  - BLOOD PRESSURE INCREASED [None]
  - BODY TEMPERATURE INCREASED [None]
  - ERYTHEMA [None]
